FAERS Safety Report 19946363 (Version 1)
Quarter: 2021Q4

REPORT INFORMATION
  Report Type: Spontaneous
  Country: DE (occurrence: DE)
  Receive Date: 20211012
  Receipt Date: 20211012
  Transmission Date: 20220303
  Serious: Yes (Hospitalization, Other)
  Sender: FDA-Public Use
  Company Number: DE-ADRED-06008-02

PATIENT
  Age: 79 Year
  Sex: Male

DRUGS (4)
  1. TORSEMIDE [Suspect]
     Active Substance: TORSEMIDE
     Indication: Product used for unknown indication
     Dosage: 5 MG, 1-0-0-0, TABLETTEN
     Route: 048
  2. MEMANTINE [Concomitant]
     Active Substance: MEMANTINE
     Dosage: 20 MG, 1-0-0-0, TABLETTEN
     Route: 048
  3. PIPAMPERONE [Concomitant]
     Active Substance: PIPAMPERONE
     Dosage: 40 MG, 0-0-0-1, TABLETTEN
     Route: 048
  4. TAMSULOSIN [Concomitant]
     Active Substance: TAMSULOSIN
     Dosage: 0.4 MG, 1-0-0-0, KAPSELN
     Route: 048

REACTIONS (7)
  - Dementia [Unknown]
  - Nausea [Unknown]
  - Dehydration [Unknown]
  - Aphasia [Unknown]
  - Vomiting [Unknown]
  - Tachycardia [Unknown]
  - Diarrhoea [Unknown]
